FAERS Safety Report 10901136 (Version 2)
Quarter: 2015Q2

REPORT INFORMATION
  Report Type: Spontaneous
  Country: IT (occurrence: IT)
  Receive Date: 20150310
  Receipt Date: 20150624
  Transmission Date: 20150821
  Serious: Yes (Hospitalization)
  Sender: FDA-Public Use
  Company Number: IT-RANBAXY-2015RR-93804

PATIENT

DRUGS (6)
  1. MOGADON [Suspect]
     Active Substance: NITRAZEPAM
     Indication: PSYCHOTIC DISORDER
     Dosage: 35 MG COMPLETE
     Route: 048
     Dates: start: 20140818, end: 20140818
  2. CYMBALTA [Suspect]
     Active Substance: DULOXETINE HYDROCHLORIDE
     Indication: PSYCHOTIC DISORDER
     Dosage: 840 MG COMPLETE
     Route: 048
     Dates: start: 20140818, end: 20140818
  3. GABAPENTIN. [Suspect]
     Active Substance: GABAPENTIN
     Indication: FIBROMYALGIA
     Dosage: 1200 MG COMPLETE
     Route: 048
     Dates: start: 20140818, end: 20140818
  4. VECLAM [Suspect]
     Active Substance: CLARITHROMYCIN
     Indication: PRODUCT USED FOR UNKNOWN INDICATION
     Dosage: 5500 MG COMPLETE
     Route: 048
     Dates: start: 20140818, end: 20140818
  5. LAROXYL [Suspect]
     Active Substance: AMITRIPTYLINE
     Indication: PSYCHOTIC DISORDER
     Dosage: 800 MG COMPLETE
     Route: 048
     Dates: start: 20140818, end: 20140818
  6. FELISON [Suspect]
     Active Substance: FLURAZEPAM MONOHYDROCHLORIDE
     Indication: PSYCHOTIC DISORDER
     Dosage: 35 MG COMPLETE
     Route: 048
     Dates: start: 20140818, end: 20140818

REACTIONS (2)
  - Loss of consciousness [Recovering/Resolving]
  - Drug abuse [Recovering/Resolving]

NARRATIVE: CASE EVENT DATE: 20140818
